FAERS Safety Report 7921922-0 (Version None)
Quarter: 2011Q4

REPORT INFORMATION
  Report Type: 
  Country: None (occurrence: None)
  Receive Date: 20111117
  Receipt Date: 20111115
  Transmission Date: 20120403
  Serious: Yes (Death, Other)
  Sender: FDA-Public Use
  Company Number: AU-ROCHE-1013053

PATIENT
  Sex: Male

DRUGS (1)
  1. LUCENTIS [Suspect]
     Indication: AGE-RELATED MACULAR DEGENERATION
     Route: 050
     Dates: start: 20100901, end: 20110330

REACTIONS (4)
  - BLADDER CANCER [None]
  - DIABETES MELLITUS [None]
  - UROSEPSIS [None]
  - GENERAL PHYSICAL HEALTH DETERIORATION [None]
